FAERS Safety Report 6999581-3 (Version None)
Quarter: 2010Q3

REPORT INFORMATION
  Report Type: 
  Country: None (occurrence: None)
  Receive Date: 20100920
  Receipt Date: 20070607
  Transmission Date: 20110219
  Serious: Yes (Hospitalization)
  Sender: FDA-Public Use
  Company Number: US-ASTRAZENECA-2006UW24169

PATIENT
  Age: 19014 Day
  Sex: Female
  Weight: 109.8 kg

DRUGS (8)
  1. SEROQUEL [Suspect]
     Indication: DEPRESSION
     Route: 048
     Dates: start: 20040511
  2. ZYPREXA [Suspect]
     Route: 048
     Dates: start: 20020422
  3. GEODON [Concomitant]
     Indication: SCHIZOPHRENIA
     Dosage: 40-1200 MG
     Route: 048
     Dates: start: 20060516
  4. GEODON [Concomitant]
     Indication: BIPOLAR DISORDER
     Dosage: 40-1200 MG
     Route: 048
     Dates: start: 20060516
  5. PROZAC [Concomitant]
     Indication: DEPRESSION
     Dates: start: 19870101
  6. PROZAC [Concomitant]
     Route: 048
     Dates: start: 20001127, end: 20070101
  7. TRAZODONE HCL [Concomitant]
     Route: 048
     Dates: start: 20001127
  8. EFFEXOR [Concomitant]
     Route: 048
     Dates: start: 20010503

REACTIONS (5)
  - DIABETES MELLITUS [None]
  - DIABETES MELLITUS INADEQUATE CONTROL [None]
  - DIABETIC COMA [None]
  - GLUCOSE TOLERANCE IMPAIRED [None]
  - TYPE 2 DIABETES MELLITUS [None]
